FAERS Safety Report 8336164 (Version 3)
Quarter: 2015Q1

REPORT INFORMATION
  Report Type: Report from Study
  Country: US (occurrence: US)
  Receive Date: 20120113
  Receipt Date: 20150224
  Transmission Date: 20150721
  Serious: Yes (Death)
  Sender: FDA-Public Use
  Company Number: US-ROCHE-1028920

PATIENT
  Age: 44 Year
  Sex: Male

DRUGS (24)
  1. AVASTIN [Suspect]
     Active Substance: BEVACIZUMAB
     Dosage: ONE TIME INTRAVENOUS PIGGYBACK
     Route: 042
  2. EMEND [Concomitant]
     Active Substance: APREPITANT
     Route: 048
  3. BENADRYL [Concomitant]
     Active Substance: DIPHENHYDRAMINE HYDROCHLORIDE
     Dosage: INTRAVENOUS PUSH ONE TIME
     Route: 042
  4. CAMPTOSAR [Concomitant]
     Active Substance: IRINOTECAN HYDROCHLORIDE
     Dosage: ONE TIME INTRAVENOUS PIGGYBACK
     Route: 042
  5. AVASTIN [Suspect]
     Active Substance: BEVACIZUMAB
     Dosage: ONE TIME INTRAVENOUS PIGGYBACK
     Route: 042
  6. LIDOCAINE. [Concomitant]
     Active Substance: LIDOCAINE
     Route: 061
  7. XELODA [Suspect]
     Active Substance: CAPECITABINE
     Indication: PRODUCT USED FOR UNKNOWN INDICATION
     Route: 065
  8. ATROPINE [Concomitant]
     Active Substance: ATROPINE
     Dosage: INTRAVENOUS PUSH ONE TIME
     Route: 042
  9. SOLU-MEDROL [Concomitant]
     Active Substance: METHYLPREDNISOLONE SODIUM SUCCINATE
     Dosage: INTRAVENOUS PUSH ONE TIME
     Route: 042
  10. GEMZAR [Concomitant]
     Active Substance: GEMCITABINE HYDROCHLORIDE
  11. NEULASTA [Concomitant]
     Active Substance: PEGFILGRASTIM
     Dosage: SUBCUTANEOUS ONE TIME
     Route: 058
  12. ERBITUX [Concomitant]
     Active Substance: CETUXIMAB
     Dosage: ONE TIME INTRAVENOUS PIGGYBACK
     Route: 042
  13. PACLITAXEL. [Concomitant]
     Active Substance: PACLITAXEL
     Route: 042
  14. TAXOTERE [Concomitant]
     Active Substance: DOCETAXEL
     Dosage: ONE TIME INTRAVENOUS PIGGYBACK
     Route: 042
  15. CAMPTOSAR [Concomitant]
     Active Substance: IRINOTECAN HYDROCHLORIDE
     Dosage: ONE TIME INTRAVENOUS PIGGYBACK
     Route: 042
  16. AVASTIN [Suspect]
     Active Substance: BEVACIZUMAB
     Indication: METASTASES TO LIVER
     Dosage: ONE TIME INTRAVENOUS PIGGYBACK
     Route: 042
  17. ERBITUX [Concomitant]
     Active Substance: CETUXIMAB
     Dosage: ONE TIME INTRAVENOUS PIGGYBACK
     Route: 042
  18. DEXAMETHASONE. [Concomitant]
     Active Substance: DEXAMETHASONE
     Dosage: ONE TIME INTRAVENOUS PIGGYBACK
     Route: 042
  19. ALOXI [Concomitant]
     Active Substance: PALONOSETRON HYDROCHLORIDE
     Dosage: INTRAVENOUS PUSH ONE TIME
     Route: 042
  20. AVASTIN [Suspect]
     Active Substance: BEVACIZUMAB
     Indication: PANCREATIC CARCINOMA
     Dosage: ONE TIME INTRAVENOUS PIGGYBACK
     Route: 042
     Dates: start: 200907
  21. AVASTIN [Suspect]
     Active Substance: BEVACIZUMAB
     Dosage: ONE TIME INTRAVENOUS PIGGYBACK
     Route: 042
  22. AVASTIN [Suspect]
     Active Substance: BEVACIZUMAB
     Dosage: ONE TIME INTRAVENOUS PIGGYBACK
     Route: 042
  23. ERBITUX [Concomitant]
     Active Substance: CETUXIMAB
     Dosage: ONE TIME INTRAVENOUS PIGGYBACK
     Route: 042
  24. PEPCID [Concomitant]
     Active Substance: FAMOTIDINE
     Dosage: ONE TIME INTRAVENOUS PIGGYBACK
     Route: 042

REACTIONS (2)
  - Death [Fatal]
  - Off label use [Unknown]

NARRATIVE: CASE EVENT DATE: 201012
